FAERS Safety Report 5745229-5 (Version None)
Quarter: 2008Q2

REPORT INFORMATION
  Report Type: 
  Country: None (occurrence: None)
  Receive Date: 20080521
  Receipt Date: 20080515
  Transmission Date: 20081010
  Serious: Yes (Death, Hospitalization)
  Sender: FDA-Public Use
  Company Number: B0516791A

PATIENT
  Age: 55 Year
  Sex: Female
  Weight: 72 kg

DRUGS (4)
  1. AVANDAMET [Suspect]
     Dosage: 1TAB PER DAY
     Route: 048
     Dates: start: 20070101, end: 20071001
  2. TRIATEC [Concomitant]
     Dosage: 5MG PER DAY
     Route: 048
     Dates: start: 19990101, end: 20071001
  3. AMLOR [Concomitant]
     Dosage: 10MG PER DAY
     Route: 048
     Dates: start: 20050301, end: 20071001
  4. ZOCOR [Concomitant]
     Dosage: 40MG PER DAY
     Route: 048
     Dates: start: 20050801, end: 20071001

REACTIONS (14)
  - ACUTE PULMONARY OEDEMA [None]
  - BRONCHOSPASM [None]
  - CARDIAC FAILURE [None]
  - CONGESTIVE CARDIOMYOPATHY [None]
  - CORONARY ARTERY DISEASE [None]
  - COUGH [None]
  - DYSPNOEA AT REST [None]
  - EJECTION FRACTION DECREASED [None]
  - HYPERHIDROSIS [None]
  - MYOCARDIAL INFARCTION [None]
  - OEDEMA PERIPHERAL [None]
  - PAINFUL RESPIRATION [None]
  - PULMONARY ARTERIAL HYPERTENSION [None]
  - RALES [None]
